FAERS Safety Report 24969196 (Version 1)
Quarter: 2025Q1

REPORT INFORMATION
  Report Type: Report from Study
  Country: US (occurrence: US)
  Receive Date: 20250214
  Receipt Date: 20250214
  Transmission Date: 20250409
  Serious: Yes (Other)
  Sender: AMNEAL
  Company Number: US-AMNEAL PHARMACEUTICALS-2024-AMRX-01116

PATIENT
  Sex: Female

DRUGS (2)
  1. CARBIDOPA\LEVODOPA [Suspect]
     Active Substance: CARBIDOPA\LEVODOPA
     Indication: Product used for unknown indication
     Route: 065
  2. CARBIDOPA\LEVODOPA [Suspect]
     Active Substance: CARBIDOPA\LEVODOPA
     Dosage: 61 .25-245 MG;
     Route: 048

REACTIONS (7)
  - Suicidal ideation [Unknown]
  - Impaired gastric emptying [Unknown]
  - Stress [Unknown]
  - Thinking abnormal [Unknown]
  - Dysphonia [Unknown]
  - Unevaluable event [Unknown]
  - Drug ineffective [Unknown]
